FAERS Safety Report 23779758 (Version 1)
Quarter: 2024Q2

REPORT INFORMATION
  Report Type: Spontaneous
  Country: US (occurrence: US)
  Receive Date: 20240424
  Receipt Date: 20240424
  Transmission Date: 20240716
  Serious: No
  Sender: FDA-Public Use
  Company Number: US-ABBVIE-5729606

PATIENT
  Sex: Female

DRUGS (4)
  1. RESTASIS [Suspect]
     Active Substance: CYCLOSPORINE
     Indication: Uveitis
     Route: 047
  2. RESTASIS [Suspect]
     Active Substance: CYCLOSPORINE
     Indication: Dry eye
  3. RESTASIS [Suspect]
     Active Substance: CYCLOSPORINE
     Indication: Intraocular pressure increased
  4. RESTASIS [Suspect]
     Active Substance: CYCLOSPORINE
     Indication: Eye inflammation

REACTIONS (3)
  - Intraocular pressure increased [Not Recovered/Not Resolved]
  - Incorrect dose administered [Unknown]
  - Off label use [Unknown]
